FAERS Safety Report 7558226-4 (Version None)
Quarter: 2011Q2

REPORT INFORMATION
  Report Type: 
  Country: None (occurrence: None)
  Receive Date: 20110620
  Receipt Date: 20110615
  Transmission Date: 20111010
  Serious: Yes (Disabling, Other)
  Sender: FDA-Public Use
  Company Number: DE-ABBOTT-11P-062-0732690-00

PATIENT
  Sex: Male

DRUGS (1)
  1. VALPROATE SODIUM [Suspect]
     Indication: EPILEPSY
     Dates: start: 19970101, end: 20000101

REACTIONS (8)
  - PHYSICAL DISABILITY [None]
  - FAT TISSUE INCREASED [None]
  - ARTHROPATHY [None]
  - LIGAMENT DISORDER [None]
  - SOCIAL PROBLEM [None]
  - WEIGHT INCREASED [None]
  - MENTAL DISORDER [None]
  - INTERVERTEBRAL DISC PROTRUSION [None]
